FAERS Safety Report 6182953-7 (Version None)
Quarter: 2009Q2

REPORT INFORMATION
  Report Type: 
  Country: None (occurrence: None)
  Receive Date: 20090507
  Receipt Date: 20090414
  Transmission Date: 20091009
  Serious: No
  Sender: FDA-Public Use
  Company Number: US-BAYER-200918761NA

PATIENT
  Age: 42 Year
  Sex: Male

DRUGS (1)
  1. MAGNEVIST [Suspect]
     Indication: NUCLEAR MAGNETIC RESONANCE IMAGING
     Dosage: TOTAL DAILY DOSE: 18 ML
     Dates: start: 20090410, end: 20090410

REACTIONS (3)
  - NAUSEA [None]
  - RASH PRURITIC [None]
  - VOMITING [None]
